FAERS Safety Report 6231272-9 (Version None)
Quarter: 2009Q2

REPORT INFORMATION
  Report Type: 
  Country: None (occurrence: None)
  Receive Date: 20090616
  Receipt Date: 20090605
  Transmission Date: 20091009
  Serious: Yes (Hospitalization)
  Sender: FDA-Public Use
  Company Number: ES-ABBOTT-09P-144-0578256-00

PATIENT
  Age: 37 Year
  Sex: Female
  Weight: 61 kg

DRUGS (4)
  1. HUMIRA [Suspect]
     Indication: CROHN'S DISEASE
     Route: 058
     Dates: start: 20090320
  2. DACORTIN [Concomitant]
     Indication: CROHN'S DISEASE
     Dates: start: 20090420
  3. CEMIDON [Concomitant]
     Indication: ANTIBIOTIC PROPHYLAXIS
     Dates: start: 20090114
  4. PANTOPRAZOLE SODIUM [Concomitant]
     Indication: DYSPEPSIA
     Dates: start: 20090511

REACTIONS (2)
  - LYMPHADENOPATHY [None]
  - PYREXIA [None]
